FAERS Safety Report 4916228-8 (Version None)
Quarter: 2006Q1

REPORT INFORMATION
  Report Type: 
  Country: None (occurrence: None)
  Receive Date: 20060217
  Receipt Date: 20051026
  Transmission Date: 20060701
  Serious: Yes (Other)
  Sender: FDA-Public Use
  Company Number: GB-MERCK-0510GBR00179

PATIENT
  Age: 76 Year
  Sex: Female
  Weight: 35 kg

DRUGS (18)
  1. TEMAZEPAM [Concomitant]
     Route: 065
  2. SIMVASTATIN [Concomitant]
     Route: 065
  3. LANSOPRAZOLE [Concomitant]
     Route: 065
  4. ISOSORBIDE MONONITRATE [Concomitant]
     Indication: ASTHMA
     Route: 065
  5. IPRATROPIUM BROMIDE [Concomitant]
     Indication: ASTHMA
     Route: 065
  6. BUDESONIDE [Concomitant]
     Route: 065
  7. VIOXX [Suspect]
     Indication: OSTEOARTHRITIS
     Route: 048
     Dates: end: 20040901
  8. ASPIRIN [Concomitant]
     Route: 065
  9. LOPERAMIDE HYDROCHLORIDE [Concomitant]
     Route: 065
  10. RAMIPRIL [Concomitant]
     Route: 065
  11. CODEINE PHOSPHATE [Concomitant]
     Route: 065
  12. NITROGLYCERIN [Concomitant]
     Route: 065
  13. FUROSEMIDE [Concomitant]
     Route: 065
  14. MORPHINE SULFATE [Concomitant]
     Route: 065
  15. LEVOTHYROXINE SODIUM [Concomitant]
     Route: 065
  16. POLYVINYL ALCOHOL [Concomitant]
     Route: 065
  17. PIROXICAM [Concomitant]
     Route: 065
     Dates: start: 20030201, end: 20030501
  18. TRAMADOL HYDROCHLORIDE [Concomitant]
     Route: 065
     Dates: start: 20030201, end: 20030501

REACTIONS (2)
  - DYSPNOEA [None]
  - MYOCARDIAL INFARCTION [None]
